FAERS Safety Report 9973677 (Version 2)
Quarter: 2014Q2

REPORT INFORMATION
  Report Type: Report from Study
  Country: IL (occurrence: IL)
  Receive Date: 20140306
  Receipt Date: 20140522
  Transmission Date: 20141212
  Serious: Yes (Other)
  Sender: FDA-Public Use
  Company Number: PHHY2014IL026516

PATIENT
  Age: 61 Year
  Sex: Male
  Weight: 96.9 kg

DRUGS (1)
  1. TASIGNA [Suspect]
     Indication: CHRONIC MYELOID LEUKAEMIA
     Dosage: 400 MG, BID
     Route: 048
     Dates: start: 20080101

REACTIONS (2)
  - Intervertebral disc protrusion [Unknown]
  - Back pain [Recovering/Resolving]
